FAERS Safety Report 19091105 (Version 1)
Quarter: 2021Q2

REPORT INFORMATION
  Report Type: Spontaneous
  Country: NL (occurrence: NL)
  Receive Date: 20210405
  Receipt Date: 20210405
  Transmission Date: 20210717
  Serious: Yes (Life-Threatening)
  Sender: FDA-Public Use
  Company Number: NL-ROCHE-2799460

PATIENT
  Age: 57 Year
  Sex: Male
  Weight: 82 kg

DRUGS (12)
  1. NATRIUMCHLORIDE [Concomitant]
     Active Substance: SODIUM CHLORIDE
  2. DEXAMETHASON [Concomitant]
     Active Substance: DEXAMETHASONE
  3. FENOTEROL;IPRATROPIUM [Concomitant]
     Active Substance: FENOTEROL\IPRATROPIUM
  4. PANTOPRAZOL [Concomitant]
     Active Substance: PANTOPRAZOLE SODIUM
  5. MIDAZOLAM. [Concomitant]
     Active Substance: MIDAZOLAM
  6. INSULINE GLARGINE [Concomitant]
     Active Substance: INSULIN GLARGINE
  7. RINGERLACTAAT [Concomitant]
  8. NORADRENALINE [Concomitant]
     Active Substance: NOREPINEPHRINE
  9. CEFOTAXIME [Concomitant]
     Active Substance: CEFOTAXIME SODIUM
  10. TOCILIZUMAB. [Suspect]
     Active Substance: TOCILIZUMAB
     Indication: COVID-19 PNEUMONIA
     Dosage: 660MG (8MG/KG)
     Route: 041
     Dates: start: 20210320
  11. REMIFENTANIL HYDROCHLORIDE. [Concomitant]
     Active Substance: REMIFENTANIL HYDROCHLORIDE
  12. INSULINE ASPARTE [Concomitant]
     Active Substance: INSULIN ASPART

REACTIONS (1)
  - Anaphylactic shock [Recovering/Resolving]

NARRATIVE: CASE EVENT DATE: 20210320
